FAERS Safety Report 21557743 (Version 1)
Quarter: 2022Q4

REPORT INFORMATION
  Report Type: Spontaneous
  Country: US (occurrence: US)
  Receive Date: 20221106
  Receipt Date: 20221106
  Transmission Date: 20230113
  Serious: No
  Sender: FDA-Public Use
  Company Number: US-PADAGIS-2022PAD00848

PATIENT

DRUGS (2)
  1. EVAMIST [Suspect]
     Active Substance: ESTRADIOL
     Indication: Hormone replacement therapy
     Dosage: UNK
     Route: 065
     Dates: end: 2022
  2. CELECOXIB [Concomitant]
     Active Substance: CELECOXIB
     Indication: Product used for unknown indication
     Dosage: 30 MG, QD (30 MG, PO, QD)
     Route: 065

REACTIONS (1)
  - Drug ineffective [Unknown]
